FAERS Safety Report 7091072-7 (Version None)
Quarter: 2010Q4

REPORT INFORMATION
  Report Type: 
  Country: None (occurrence: None)
  Receive Date: 20101105
  Receipt Date: 20101105
  Transmission Date: 20110411
  Serious: Yes (Hospitalization)
  Sender: FDA-Public Use
  Company Number: None

PATIENT
  Sex: Male
  Weight: 139 kg

DRUGS (2)
  1. CYTARABINE [Suspect]
     Dosage: 3654 MG
     Dates: end: 20101014
  2. DAUNORUBICIN HCL [Suspect]
     Dosage: 468 MG
     Dates: end: 20101009

REACTIONS (5)
  - BLOOD BILIRUBIN INCREASED [None]
  - BLOOD CREATININE INCREASED [None]
  - CHOLELITHIASIS [None]
  - HYPOTENSION [None]
  - RESPIRATORY DISTRESS [None]
